FAERS Safety Report 10534052 (Version 1)
Quarter: 2014Q4

REPORT INFORMATION
  Report Type: Spontaneous
  Country: US (occurrence: None)
  Receive Date: 20141021
  Receipt Date: 20141021
  Transmission Date: 20150529
  Serious: No
  Sender: FDA-Public Use
  Company Number: None

PATIENT
  Sex: Male

DRUGS (13)
  1. TRIAMTERENE. [Concomitant]
     Active Substance: TRIAMTERENE
  2. CYCLOBENZAPHINE [Concomitant]
  3. LIDOCAINE. [Concomitant]
     Active Substance: LIDOCAINE
  4. CYCLOBENZAPRINE [Concomitant]
     Active Substance: CYCLOBENZAPRINE
  5. OXYCODONE/ACETAMOPHEN [Concomitant]
  6. WARFARIN [Concomitant]
     Active Substance: WARFARIN
  7. XTANDI [Suspect]
     Active Substance: ENZALUTAMIDE
     Indication: PROSTATE CANCER
     Route: 048
     Dates: start: 20140828
  8. HYDROCORTISONE. [Concomitant]
     Active Substance: HYDROCORTISONE
  9. DILTIAZEM HYDROCHLORIDE EXTENDED RELEASE [Concomitant]
     Active Substance: DILTIAZEM HYDROCHLORIDE
  10. BICALUTAMIDE. [Concomitant]
     Active Substance: BICALUTAMIDE
  11. HYDROCODONE/ACETAMPHEN [Concomitant]
  12. CARTIA (DILTAZEM) [Concomitant]
  13. QDAYL [Concomitant]

REACTIONS (1)
  - Rash [None]
